FAERS Safety Report 5302722-7 (Version None)
Quarter: 2007Q2

REPORT INFORMATION
  Report Type: 
  Country: None (occurrence: None)
  Receive Date: 20070419
  Receipt Date: 20070409
  Transmission Date: 20071010
  Serious: Yes (Other)
  Sender: FDA-Public Use
  Company Number: US-PFIZER INC-2007028547

PATIENT
  Sex: Female
  Weight: 63.5 kg

DRUGS (11)
  1. CHANTIX [Suspect]
     Indication: EX-SMOKER
     Dates: start: 20070301, end: 20070301
  2. LIPITOR [Concomitant]
     Indication: BLOOD CHOLESTEROL INCREASED
     Dosage: DAILY DOSE:5MG
  3. METFORMIN HCL [Concomitant]
  4. ACIPHEX [Concomitant]
  5. ALL OTHER THERAPEUTIC PRODUCTS [Concomitant]
  6. TEVETEN [Concomitant]
     Dosage: DAILY DOSE:600MG
  7. ACTOS [Concomitant]
     Dosage: DAILY DOSE:15MG
  8. CALCIUM [Concomitant]
  9. VITAMIN E [Concomitant]
  10. ASCORBIC ACID [Concomitant]
  11. ACETYLSALICYLIC ACID SRT [Concomitant]

REACTIONS (5)
  - DYSPNOEA [None]
  - EYE SWELLING [None]
  - HYPERSENSITIVITY [None]
  - SWELLING FACE [None]
  - WHEEZING [None]
